FAERS Safety Report 9110530 (Version 1)
Quarter: 2013Q1

REPORT INFORMATION
  Report Type: Spontaneous
  Country: US (occurrence: US)
  Receive Date: 20130221
  Receipt Date: 20130221
  Transmission Date: 20140127
  Serious: No
  Sender: FDA-Public Use
  Company Number: US-BRACCO-007399

PATIENT
  Age: 32 Year
  Sex: Female

DRUGS (5)
  1. CHOLETEC [Suspect]
     Indication: GALLBLADDER DISORDER
     Route: 042
     Dates: start: 20120111, end: 20120111
  2. CHOLETEC [Suspect]
     Indication: MASS
     Route: 042
     Dates: start: 20120111, end: 20120111
  3. CHOLETEC [Suspect]
     Indication: HEPATOBILIARY SCAN
     Route: 042
     Dates: start: 20120111, end: 20120111
  4. CHOLETEC [Suspect]
     Indication: ABDOMINAL PAIN
     Route: 042
     Dates: start: 20120111, end: 20120111
  5. PROZAC [Concomitant]

REACTIONS (2)
  - Hypoaesthesia [Recovered/Resolved]
  - Nausea [Recovered/Resolved]
